FAERS Safety Report 6151933-X (Version None)
Quarter: 2009Q2

REPORT INFORMATION
  Report Type: 
  Country: None (occurrence: None)
  Receive Date: 20090408
  Receipt Date: 20090216
  Transmission Date: 20091009
  Serious: Yes (Hospitalization, Other)
  Sender: FDA-Public Use
  Company Number: 000019

PATIENT
  Sex: Female

DRUGS (3)
  1. LACOSAMIDE [Suspect]
     Indication: EPILEPSY
     Dosage: 200 MG BID, ORAL
     Route: 048
     Dates: start: 20081114
  2. OXCARBAZEPINE [Suspect]
     Dosage: 2000 MG, (DOSE REDUCED);
  3. TOPIRAMATE [Concomitant]

REACTIONS (4)
  - CONVULSION [None]
  - DRUG INTERACTION [None]
  - SOMNOLENCE [None]
  - VOMITING [None]
